FAERS Safety Report 8975015 (Version 1)
Quarter: 2012Q4

REPORT INFORMATION
  Report Type: 
  Country: IL (occurrence: IL)
  Receive Date: 20121219
  Receipt Date: 20121219
  Transmission Date: 20130627
  Serious: Yes (Death)
  Sender: FDA-Public Use
  Company Number: IL-CELGENEUS-082-50794-12120955

PATIENT
  Age: 89 Year
  Sex: Female

DRUGS (1)
  1. VIDAZA [Suspect]
     Indication: MDS
     Route: 065

REACTIONS (1)
  - Sepsis [Fatal]
